FAERS Safety Report 15657572 (Version 3)
Quarter: 2018Q4

REPORT INFORMATION
  Report Type: Report from Study
  Country: FR (occurrence: FR)
  Receive Date: 20181126
  Receipt Date: 20181129
  Transmission Date: 20190205
  Serious: Yes (Death)
  Sender: FDA-Public Use
  Company Number: FR-JNJFOC-20181129465

PATIENT
  Sex: Male
  Weight: 90 kg

DRUGS (7)
  1. DECAPEPTYL [Suspect]
     Active Substance: TRIPTORELIN
     Indication: PROSTATE CANCER METASTATIC
     Dosage: CUMULATIVE DOSE TO FIRST ADMINISTRATION WAS 90 MG
     Route: 058
     Dates: start: 20170905
  2. ZYTIGA [Suspect]
     Active Substance: ABIRATERONE ACETATE
     Indication: PROSTATE CANCER METASTATIC
     Dosage: CUMULATIVE DOSE TO FIRST ADMINISTRATION WAS 344 GM
     Route: 048
     Dates: start: 20171025
  3. BICALUTAMIDE. [Suspect]
     Active Substance: BICALUTAMIDE
     Indication: PROSTATE CANCER METASTATIC
     Dosage: CUMULATIVE DOSE TO FIRST ADMINISTRATION WAS 1500 MG
     Route: 048
     Dates: start: 20170825
  4. TAXOTERE [Suspect]
     Active Substance: DOCETAXEL
     Indication: PROSTATE CANCER METASTATIC
     Dosage: CUMULATIVE DOSE TO FIRST ADMINISTRATION WAS 908 MG
     Route: 042
     Dates: start: 20171026
  5. PREDNISONE. [Concomitant]
     Active Substance: PREDNISONE
     Indication: PROSTATE CANCER METASTATIC
     Dosage: CUMULATIVE DOSE TO FIRST ADMINISTRATION WAS 3440 MG
     Route: 048
     Dates: start: 20171025
  6. LERCAN [Concomitant]
     Active Substance: LERCANIDIPINE
     Indication: HYPERTENSION
     Route: 048
     Dates: start: 20181005
  7. COSIMPREL [Concomitant]
     Indication: HYPERTENSION
     Route: 048
     Dates: start: 2017

REACTIONS (1)
  - Sudden death [Fatal]
